FAERS Safety Report 20757747 (Version 14)
Quarter: 2025Q3

REPORT INFORMATION
  Report Type: Spontaneous
  Country: US (occurrence: US)
  Receive Date: 20220427
  Receipt Date: 20250926
  Transmission Date: 20251021
  Serious: Yes (Other)
  Sender: PFIZER
  Company Number: US-PFIZER INC-2021823166

PATIENT
  Age: 74 Year
  Sex: Male

DRUGS (7)
  1. BRAFTOVI [Suspect]
     Active Substance: ENCORAFENIB
     Indication: Lung neoplasm malignant
     Route: 048
     Dates: start: 20210714
  2. BRAFTOVI [Suspect]
     Active Substance: ENCORAFENIB
     Dosage: 225 MG, 1X/DAY (75 MG TAKE 3 PER DAY)
     Route: 048
  3. BRAFTOVI [Suspect]
     Active Substance: ENCORAFENIB
     Dosage: 150 MG, 1X/DAY (2 CAPSULE OF 75 MG DAILY)
     Route: 048
  4. MEKTOVI [Suspect]
     Active Substance: BINIMETINIB
     Indication: Lung neoplasm malignant
     Dates: start: 20210714
  5. MEKTOVI [Suspect]
     Active Substance: BINIMETINIB
     Dosage: 15 MG TABLETS, 2 TABLETS EVERY AM, 1 TABLET AT BEDTIME (EVERY 12 HOURS)
     Route: 048
  6. MEKTOVI [Suspect]
     Active Substance: BINIMETINIB
     Dosage: 30 MG, 2X/DAY; 2 TABLETS (OF 15 MG) EVERY 12 HOURS
  7. MEKTOVI [Suspect]
     Active Substance: BINIMETINIB
     Dosage: 45 MG, DAILY (30 MG IN THE MORNING AND 15 MG IN THE EVENING) (EVERY 12 HOURS)
     Route: 048

REACTIONS (4)
  - Pneumonia [Unknown]
  - Chloasma [Unknown]
  - Product prescribing error [Unknown]
  - Off label use [Unknown]
